FAERS Safety Report 11615581 (Version 1)
Quarter: 2015Q4

REPORT INFORMATION
  Report Type: Spontaneous
  Country: US (occurrence: None)
  Receive Date: 20151008
  Receipt Date: 20151008
  Transmission Date: 20160304
  Serious: Yes (Life-Threatening, Hospitalization)
  Sender: FDA-Public Use
  Company Number: None

PATIENT
  Age: 65 Year
  Sex: Male
  Weight: 84.2 kg

DRUGS (16)
  1. EXPAREL [Suspect]
     Active Substance: BUPIVACAINE
     Indication: PROCEDURAL PAIN
     Route: 058
     Dates: start: 20150915, end: 20150915
  2. LACTED RINGER^S SOLUTION [Concomitant]
  3. ALBUMIN HUMAN [Concomitant]
     Active Substance: ALBUMIN (HUMAN)
  4. GABAPENTIN. [Concomitant]
     Active Substance: GABAPENTIN
  5. KETOROLAC (TORADOL) [Concomitant]
  6. HYDROMORPHONE [Concomitant]
     Active Substance: HYDROMORPHONE
  7. OXYCODONE HYDROCHLORIDE. [Concomitant]
     Active Substance: OXYCODONE HYDROCHLORIDE
  8. CLONIDINE (DURACLON) [Concomitant]
  9. VANCOMYCIN [Concomitant]
     Active Substance: VANCOMYCIN
  10. ATROPINE SULFATE. [Concomitant]
     Active Substance: ATROPINE SULFATE
  11. ACETAMINOPHEN. [Concomitant]
     Active Substance: ACETAMINOPHEN
  12. PROPOFOL. [Concomitant]
     Active Substance: PROPOFOL
  13. CLINDAMYCIN [Concomitant]
     Active Substance: CLINDAMYCIN\CLINDAMYCIN PHOSPHATE
  14. METOCLOPRAMIDE. [Concomitant]
     Active Substance: METOCLOPRAMIDE
  15. ONDANSETRON [Concomitant]
     Active Substance: ONDANSETRON
  16. BUPIVACAINE HCL PF (MARCAINE PF) [Concomitant]

REACTIONS (3)
  - Atrioventricular block [None]
  - Electrocardiogram abnormal [None]
  - Loss of consciousness [None]

NARRATIVE: CASE EVENT DATE: 20150915
